FAERS Safety Report 19681712 (Version 4)
Quarter: 2022Q3

REPORT INFORMATION
  Report Type: Spontaneous
  Country: ES (occurrence: ES)
  Receive Date: 20210810
  Receipt Date: 20220706
  Transmission Date: 20221027
  Serious: Yes (Death, Hospitalization, Other)
  Sender: FDA-Public Use
  Company Number: ES-GRUNENTHAL-2021-267886

PATIENT
  Age: 74 Year
  Sex: Female

DRUGS (15)
  1. SERTRALINE [Interacting]
     Active Substance: SERTRALINE HYDROCHLORIDE
     Indication: Adjustment disorder with depressed mood
     Dosage: 50 MILLIGRAM, 1/DAY
     Route: 065
     Dates: start: 20210216, end: 20210301
  2. TAPENTADOL [Interacting]
     Active Substance: TAPENTADOL
     Indication: Sciatica
     Dosage: 50 MG, 2X/DAY (EVERY 12 HOURS)
  3. TAPENTADOL [Interacting]
     Active Substance: TAPENTADOL
     Dosage: 50 MG, 2X/DAY
     Route: 048
     Dates: start: 20201222, end: 20210216
  4. TAPENTADOL [Interacting]
     Active Substance: TAPENTADOL
     Dosage: 200 MG, 2X/DAY
     Route: 048
     Dates: start: 20210216, end: 202103
  5. FENTANYL [Interacting]
     Active Substance: FENTANYL
     Indication: Breakthrough pain
     Dosage: 200 MICROGRAM, AS NEEDED 2 DAILY RESCUES TRANSMUCOUS
     Route: 002
     Dates: start: 20210216
  6. FENTANYL [Interacting]
     Active Substance: FENTANYL
     Indication: Sciatica
  7. PALEXIA [Interacting]
     Active Substance: TAPENTADOL HYDROCHLORIDE
     Indication: Pain
     Dosage: 50 MG, 2X/DAY
     Route: 048
     Dates: start: 20201222, end: 20210216
  8. PALEXIA [Interacting]
     Active Substance: TAPENTADOL HYDROCHLORIDE
     Indication: Sciatica
     Dosage: 200 MG, 2X/DAY
     Route: 048
     Dates: start: 20210216, end: 202103
  9. OXYCODONE [Concomitant]
     Active Substance: OXYCODONE
     Indication: Sciatica
     Dosage: UNK
     Route: 051
  10. OXYCODONE [Concomitant]
     Active Substance: OXYCODONE
     Dosage: UNK
     Route: 058
  11. GABAPENTIN [Concomitant]
     Active Substance: GABAPENTIN
     Indication: Pain
     Dosage: 300 MILLIGRAM, 1/DAY (EVERY 24 HOURS)
     Route: 065
     Dates: start: 20210216
  12. GABAPENTIN [Concomitant]
     Active Substance: GABAPENTIN
     Indication: Sciatica
  13. OCTREOTIDE [Concomitant]
     Active Substance: OCTREOTIDE
     Indication: Carcinoid syndrome
     Dosage: UNK
     Route: 065
  14. ACETAMINOPHEN [Concomitant]
     Active Substance: ACETAMINOPHEN
     Indication: Pain
     Dosage: 1 G, 3X/DAY
     Dates: start: 20200111, end: 20201222
  15. METAMIZOLE [Concomitant]
     Active Substance: METAMIZOLE
     Indication: Pain
     Dosage: 575 MG, 3X/DAY
     Dates: start: 20201011, end: 20201222

REACTIONS (21)
  - Neuroendocrine carcinoma [Fatal]
  - Hyperresponsive to stimuli [Recovering/Resolving]
  - Pelvic pain [Unknown]
  - Flushing [Unknown]
  - Vomiting [Unknown]
  - Serotonin syndrome [Recovering/Resolving]
  - Restlessness [Unknown]
  - Drug interaction [Unknown]
  - Asthenia [Unknown]
  - Decreased appetite [Unknown]
  - Seizure [Recovered/Resolved]
  - Tremor [Unknown]
  - Agitation [Unknown]
  - Mental status changes [Unknown]
  - Body temperature increased [Unknown]
  - Pain [Unknown]
  - Blood chromogranin A increased [Unknown]
  - Decreased appetite [Unknown]
  - Constipation [Unknown]
  - Adjustment disorder with depressed mood [Unknown]
  - Hyperhidrosis [Unknown]

NARRATIVE: CASE EVENT DATE: 20210301
